FAERS Safety Report 10970307 (Version 1)
Quarter: 2015Q1

REPORT INFORMATION
  Report Type: Spontaneous
  Country: US (occurrence: None)
  Receive Date: 20150330
  Receipt Date: 20150330
  Transmission Date: 20150721
  Serious: Yes (Hospitalization)
  Sender: FDA-Public Use
  Company Number: None

PATIENT
  Age: 90 Year
  Sex: Male
  Weight: 61.9 kg

DRUGS (1)
  1. HYDROCHLOROTHIAZIDE. [Suspect]
     Active Substance: HYDROCHLOROTHIAZIDE
     Route: 048
     Dates: start: 20140614

REACTIONS (8)
  - Acne [None]
  - Agranulocytosis [None]
  - Leukopenia [None]
  - Fatigue [None]
  - Pyrexia [None]
  - Swelling face [None]
  - Rash erythematous [None]
  - Pain [None]

NARRATIVE: CASE EVENT DATE: 20150315
